FAERS Safety Report 8458771-3 (Version None)
Quarter: 2012Q2

REPORT INFORMATION
  Report Type: 
  Country: None (occurrence: None)
  Receive Date: 20120615
  Receipt Date: 20120604
  Transmission Date: 20120825
  Serious: Yes (Hospitalization, Other)
  Sender: FDA-Public Use
  Company Number: DKLU1080745

PATIENT
  Age: 9 Year
  Sex: Male

DRUGS (4)
  1. VALPROATE SODIUM [Suspect]
     Indication: CONVULSION
  2. ONFI [Suspect]
     Indication: CONVULSION
  3. LAMOTRIGINE [Suspect]
     Indication: CONVULSION
  4. ETHOSUXIMIDE [Suspect]
     Indication: CONVULSION

REACTIONS (2)
  - ANTICONVULSANT DRUG LEVEL INCREASED [None]
  - COMA BLISTER [None]
